FAERS Safety Report 8911370 (Version 2)
Quarter: 2012Q4

REPORT INFORMATION
  Report Type: 
  Country: JP (occurrence: JP)
  Receive Date: 20121116
  Receipt Date: 20121127
  Transmission Date: 20130627
  Serious: Yes (Other)
  Sender: FDA-Public Use
  Company Number: JP-SANOFI-AVENTIS-2012SA082519

PATIENT
  Age: 55 Year
  Sex: Male

DRUGS (5)
  1. TAXOTERE [Suspect]
     Indication: THYMIC CANCER METASTATIC
     Route: 042
     Dates: start: 20111220, end: 20120330
  2. TAXOTERE [Suspect]
     Indication: THYMIC CANCER METASTATIC
     Dosage: cycle 4
     Route: 042
     Dates: start: 20120330, end: 20120330
  3. NEDAPLATIN [Suspect]
     Indication: THYMIC CANCER METASTATIC
     Route: 042
     Dates: start: 20111220, end: 20120302
  4. NEDAPLATIN [Suspect]
     Indication: THYMIC CANCER METASTATIC
     Dosage: cycle 4
     Route: 042
     Dates: start: 20120330, end: 20120330
  5. THERAPEUTIC RADIOPHARMACEUTICALS [Concomitant]
     Indication: THYMIC CANCER METASTATIC

REACTIONS (6)
  - Neutropenia [Recovered/Resolved]
  - Febrile neutropenia [Unknown]
  - Liver disorder [Recovering/Resolving]
  - Aspartate aminotransferase increased [Recovering/Resolving]
  - Alanine aminotransferase increased [Recovering/Resolving]
  - Stomatitis [Recovering/Resolving]
